FAERS Safety Report 10240291 (Version 1)
Quarter: 2014Q2

REPORT INFORMATION
  Report Type: Report from Study
  Country: US (occurrence: US)
  Receive Date: 20140617
  Receipt Date: 20140617
  Transmission Date: 20141212
  Serious: Yes (Hospitalization, Other)
  Sender: FDA-Public Use
  Company Number: PHHY2014US072127

PATIENT
  Age: 58 Year
  Sex: Male
  Weight: 80 kg

DRUGS (22)
  1. BASILIXIMAB [Suspect]
     Indication: RENAL TRANSPLANT
     Dosage: 20 MG, UNK
     Route: 042
     Dates: start: 20131119, end: 20131119
  2. BASILIXIMAB [Suspect]
     Indication: IMMUNOSUPPRESSION
     Dosage: 20 MG, UNK
     Route: 042
     Dates: start: 20131121, end: 20131121
  3. MYCOPHENOLATE MOFETIL [Suspect]
     Indication: RENAL TRANSPLANT
     Dosage: 500 MG, BID
     Route: 048
     Dates: start: 20140226, end: 20140311
  4. VALGANCICLOVIR HYDROCHLORIDE [Suspect]
     Indication: CYTOMEGALOVIRUS VIRAEMIA
     Dosage: UNK UKN, UNK
  5. PROGRAF [Concomitant]
     Dosage: 1 MG, UNK
     Dates: start: 20140121, end: 20140311
  6. TAMSULOSIN [Concomitant]
     Dosage: 0.4 MG, UNK
  7. VITAMIN D3 [Concomitant]
     Dosage: 2000 IU, UNK
  8. SENSIPAR [Concomitant]
     Dosage: 60 MG, UNK
  9. COLACE [Concomitant]
     Dosage: 100 MG, UNK
  10. FERROUS SULFATE [Concomitant]
     Dosage: 325 MG, UNK
  11. FLONASE [Concomitant]
     Dosage: 50 UG, UNK
  12. NORMODYNE [Concomitant]
     Dosage: 10 MG, UNK
  13. MEVACOR [Concomitant]
     Dosage: 10 MG, UNK
  14. NEBUPENT [Concomitant]
     Dosage: 300 MG, UNK
  15. DELTASONE [Concomitant]
     Dosage: 5 MG, UNK
  16. TACROLIMUS [Concomitant]
     Dosage: UNK UKN, UNK
  17. TACROLIMUS [Concomitant]
     Dosage: 0.5 MG, BID
     Dates: start: 20140315
  18. RESTORIL//CHLORMEZANONE [Concomitant]
     Dosage: 30 MG, UNK
  19. VALCYTE [Concomitant]
     Dosage: 450 MG, UNK
  20. COUMADIN//WARFARIN SODIUM [Concomitant]
     Dosage: 5 MG, UNK
  21. SOLUMEDROL [Concomitant]
     Dosage: UNK UKN, UNK
  22. ARAVA [Concomitant]
     Dosage: UNK UKN, UNK

REACTIONS (21)
  - Chronic allograft nephropathy [Recovered/Resolved with Sequelae]
  - Tubulointerstitial nephritis [Recovered/Resolved with Sequelae]
  - Kidney transplant rejection [Unknown]
  - Complications of transplanted kidney [Unknown]
  - Blood creatinine increased [Unknown]
  - Renal arteriosclerosis [Unknown]
  - Polyomavirus-associated nephropathy [Not Recovered/Not Resolved]
  - Nephrosclerosis [Not Recovered/Not Resolved]
  - Renal failure chronic [Unknown]
  - Venous thrombosis [Unknown]
  - White blood cell count decreased [Unknown]
  - Cytomegalovirus viraemia [Unknown]
  - Neutropenia [Recovered/Resolved]
  - Hypovolaemia [Unknown]
  - Platelet count decreased [Unknown]
  - Cardiac murmur [Unknown]
  - Hyponatraemia [Recovering/Resolving]
  - Haematocrit decreased [Unknown]
  - Oedema peripheral [Unknown]
  - Blood pressure systolic increased [Unknown]
  - Haemoglobin decreased [Unknown]
